FAERS Safety Report 20605937 (Version 6)
Quarter: 2022Q3

REPORT INFORMATION
  Report Type: Report from Study
  Country: US (occurrence: US)
  Receive Date: 20220317
  Receipt Date: 20220623
  Transmission Date: 20221026
  Serious: Yes (Other)
  Sender: FDA-Public Use
  Company Number: US-NOVARTISTESTPH-NVSC2022US061247

PATIENT
  Sex: Male

DRUGS (1)
  1. ENTRESTO [Suspect]
     Active Substance: SACUBITRIL\VALSARTAN
     Indication: Cardiac failure chronic
     Dosage: 100 MG
     Route: 065

REACTIONS (8)
  - Haemorrhage [Unknown]
  - Memory impairment [Unknown]
  - White blood cell count decreased [Unknown]
  - Dehydration [Unknown]
  - Panic reaction [Unknown]
  - Scratch [Unknown]
  - Fatigue [Unknown]
  - Hypotension [Unknown]
